FAERS Safety Report 12954819 (Version 1)
Quarter: 2016Q4

REPORT INFORMATION
  Report Type: Report from Study
  Country: CZ (occurrence: CZ)
  Receive Date: 20161118
  Receipt Date: 20161118
  Transmission Date: 20170207
  Serious: Yes (Death, Life-Threatening, Hospitalization, Other)
  Sender: FDA-Public Use
  Company Number: PHHO2014CZ019173

PATIENT
  Age: 67 Year
  Sex: Male
  Weight: 68 kg

DRUGS (6)
  1. OFATUMUMAB [Suspect]
     Active Substance: OFATUMUMAB
     Indication: CHRONIC LYMPHOCYTIC LEUKAEMIA
     Dosage: 300 MG, CYC
     Route: 042
     Dates: start: 20130502, end: 20130502
  2. OFATUMUMAB [Suspect]
     Active Substance: OFATUMUMAB
     Dosage: 1000 MG, CYC
     Route: 042
     Dates: start: 20130509, end: 20140403
  3. BERODUAL [Concomitant]
     Active Substance: FENOTEROL HYDROBROMIDE\IPRATROPIUM BROMIDE
     Indication: COUGH
     Dosage: 2 UNK, TID
     Route: 055
     Dates: start: 20140820, end: 20140831
  4. ZARZIO [Concomitant]
     Active Substance: FILGRASTIM
     Indication: NEUTROPENIA
     Dosage: 0.5 ML, SINGLE
     Route: 058
     Dates: start: 20140831, end: 20140901
  5. AMBROBENE [Concomitant]
     Active Substance: AMBROXOL HYDROCHLORIDE
     Indication: COUGH
     Dosage: 75 MG, TID
     Route: 048
     Dates: start: 20140820, end: 20140831
  6. EUPHYLLIN [Concomitant]
     Active Substance: AMINOPHYLLINE
     Indication: COUGH
     Dosage: 200 MG, QD
     Route: 048
     Dates: start: 20140821, end: 20140831

REACTIONS (1)
  - Septic shock [Fatal]

NARRATIVE: CASE EVENT DATE: 20140831
